FAERS Safety Report 23442200 (Version 1)
Quarter: 2024Q1

REPORT INFORMATION
  Report Type: Spontaneous
  Country: US (occurrence: US)
  Receive Date: 20240125
  Receipt Date: 20240125
  Transmission Date: 20240410
  Serious: Yes (Other)
  Sender: FDA-Public Use
  Company Number: US-TORRENT-00013379

PATIENT
  Age: 39 Year
  Sex: Female

DRUGS (2)
  1. DAPSONE [Suspect]
     Active Substance: DAPSONE
     Indication: Schnitzler^s syndrome
     Dosage: 50-75 MG DAILY
     Route: 065
  2. COLCHICINE [Suspect]
     Active Substance: COLCHICINE
     Indication: Schnitzler^s syndrome
     Dosage: 0.6 MG TWICE DAILY
     Route: 065

REACTIONS (2)
  - Treatment failure [Unknown]
  - Gastrointestinal disorder [Unknown]
